APPROVED DRUG PRODUCT: PENICILLAMINE
Active Ingredient: PENICILLAMINE
Strength: 250MG
Dosage Form/Route: CAPSULE;ORAL
Application: A210976 | Product #001 | TE Code: AB
Applicant: WATSON LABORATORIES INC
Approved: Jun 24, 2019 | RLD: No | RS: No | Type: RX